FAERS Safety Report 7686163-3 (Version None)
Quarter: 2011Q3

REPORT INFORMATION
  Report Type: 
  Country: None (occurrence: None)
  Receive Date: 20110816
  Receipt Date: 20110803
  Transmission Date: 20111222
  Serious: Yes (Other)
  Sender: FDA-Public Use
  Company Number: PHHY2011JP71147

PATIENT
  Age: 60 Year
  Sex: Male

DRUGS (2)
  1. GLEEVEC [Suspect]
     Indication: ACUTE LYMPHOCYTIC LEUKAEMIA
     Dosage: 600 MG, DAILY
     Route: 048
  2. GLEEVEC [Suspect]
     Dosage: 200 MG, DAILY
     Route: 048

REACTIONS (6)
  - FEBRILE NEUTROPENIA [None]
  - HEPATITIS C [None]
  - PLATELET COUNT DECREASED [None]
  - CHEST DISCOMFORT [None]
  - HEPATIC FUNCTION ABNORMAL [None]
  - RASH [None]
